FAERS Safety Report 11867079 (Version 1)
Quarter: 2015Q4

REPORT INFORMATION
  Report Type: Spontaneous
  Country: US (occurrence: None)
  Receive Date: 20151223
  Receipt Date: 20151223
  Transmission Date: 20160305
  Serious: No
  Sender: FDA-Public Use
  Company Number: None

PATIENT
  Age: 74 Year
  Sex: Male
  Weight: 116.8 kg

DRUGS (2)
  1. SALSALATE. [Suspect]
     Active Substance: SALSALATE
     Indication: ARTHRITIS
     Route: 048
     Dates: start: 20121123
  2. APIXABAN [Suspect]
     Active Substance: APIXABAN
     Indication: ATRIAL FIBRILLATION
     Route: 048
     Dates: start: 20150519, end: 20151219

REACTIONS (2)
  - Haemorrhage subcutaneous [None]
  - Platelet count decreased [None]

NARRATIVE: CASE EVENT DATE: 20151219
